FAERS Safety Report 8825767 (Version 1)
Quarter: 2012Q4

REPORT INFORMATION
  Report Type: 
  Country: US (occurrence: US)
  Receive Date: 20121004
  Receipt Date: 20121004
  Transmission Date: 20130627
  Serious: Yes (Other)
  Sender: FDA-Public Use
  Company Number: US-ASTRAZENECA-2012SE74484

PATIENT
  Age: 17696 Day
  Sex: Female

DRUGS (22)
  1. SEROQUEL [Suspect]
     Route: 048
  2. OMEPRAZOLE [Suspect]
     Route: 048
  3. SOMAVERT [Suspect]
     Indication: ACROMEGALY
     Route: 058
     Dates: start: 20110419, end: 20120825
  4. ARIPIPRAZOLE [Concomitant]
     Route: 048
  5. CLONAZEPAM [Concomitant]
     Route: 048
  6. CLONIDINE [Concomitant]
     Route: 048
  7. DESIPRAMINE [Concomitant]
     Route: 048
  8. DOXYCYCLINE HYCLATE [Concomitant]
     Route: 048
  9. ERGOCALCIFEROL [Concomitant]
     Indication: VITAMIN D DEFICIENCY
     Dosage: 50000 UNIT 1 CAPSULE EVERY SEVEN DAYS
     Route: 048
  10. ESTRADIOL [Concomitant]
     Indication: MENOPAUSAL SYMPTOMS
     Route: 048
  11. FLONASE [Concomitant]
     Dosage: 2 SPRAYS IN EACH NOSTRIL ONCE DAILY
     Route: 055
  12. HYDROCORTISONE [Concomitant]
     Route: 048
  13. HYDROCORTISONE SODIUM SUCCINATE [Concomitant]
     Dosage: 100MG/2ML
     Route: 042
  14. IBUPROFEN [Concomitant]
     Dosage: 800MG EVERY SIX HOURS AS NEEDED
     Route: 048
  15. LANREOTIDE [Concomitant]
     Dosage: 120MG/0.5ML EVERY FOUR WEEKS
     Route: 058
  16. LEVOTHYROXINE [Concomitant]
     Indication: HYPOTHYROIDISM
     Route: 048
  17. LORATADINE [Concomitant]
     Dosage: ONCE DAILY AS NEEDED
     Route: 048
  18. OCTREOTIDE [Concomitant]
     Indication: MIGRAINE
     Dosage: 100MCH/ML 0.1ML AS NEEDED
     Route: 058
  19. OCTREOTIDE [Concomitant]
     Indication: HEADACHE
     Dosage: 100MCH/ML 0.1ML AS NEEDED
     Route: 058
  20. PEPPERMINT OIL [Concomitant]
     Route: 048
  21. PROMETRIUM [Concomitant]
     Route: 048
  22. SUDOGEST [Concomitant]
     Dosage: 30MG EVERY SIX HOURS AS NEEDED
     Route: 048

REACTIONS (4)
  - Influenza like illness [Recovered/Resolved with Sequelae]
  - Depression [Unknown]
  - Fatigue [Unknown]
  - Dizziness [Unknown]
